FAERS Safety Report 16017623 (Version 1)
Quarter: 2019Q1

REPORT INFORMATION
  Report Type: Spontaneous
  Country: US (occurrence: US)
  Receive Date: 20190204
  Receipt Date: 20190204
  Transmission Date: 20190418
  Serious: No
  Sender: FDA-Public Use
  Company Number: None

PATIENT

DRUGS (2)
  1. AMIKACIN SULFATE. [Suspect]
     Active Substance: AMIKACIN SULFATE
  2. METOCLOPRAMIDE. [Suspect]
     Active Substance: METOCLOPRAMIDE

REACTIONS (4)
  - Wrong product stored [None]
  - Intercepted product dispensing error [None]
  - Drug monitoring procedure incorrectly performed [None]
  - Product packaging confusion [None]
